FAERS Safety Report 17076118 (Version 2)
Quarter: 2019Q4

REPORT INFORMATION
  Report Type: Spontaneous
  Country: NL (occurrence: NL)
  Receive Date: 20191126
  Receipt Date: 20191216
  Transmission Date: 20200122
  Serious: Yes (Hospitalization)
  Sender: FDA-Public Use
  Company Number: NL-MYLANLABS-2019M1113833

PATIENT
  Age: 83 Year
  Sex: Female
  Weight: 70 kg

DRUGS (11)
  1. SALBUTAMOL MYLAN [Suspect]
     Active Substance: ALBUTEROL
     Dosage: UNK
     Route: 065
     Dates: start: 20191105
  2. FUROSEMIDE. [Concomitant]
     Active Substance: FUROSEMIDE
     Indication: CARDIAC FAILURE ACUTE
     Dosage: 40 MILLIGRAM
     Dates: start: 201911
  3. IPRATROPIUM [Concomitant]
     Active Substance: IPRATROPIUM
     Dosage: UNK
     Dates: start: 201911
  4. FUROSEMIDE. [Concomitant]
     Active Substance: FUROSEMIDE
     Indication: VENTRICULAR FIBRILLATION
  5. INSULIN [Concomitant]
     Active Substance: INSULIN NOS
     Indication: DIABETES MELLITUS
     Dosage: UNK
     Dates: start: 1986
  6. NOVOMIX [Concomitant]
     Active Substance: INSULIN ASPART
     Dosage: 1 X 32 EH AND 1 X 34 EH 2X PER DAY
     Route: 058
     Dates: start: 1986
  7. SALBUTAMOL MYLAN [Suspect]
     Active Substance: ALBUTEROL
     Indication: CHRONIC OBSTRUCTIVE PULMONARY DISEASE
     Dosage: FIRST A WEEK 4 X 1 PUFF AND LATER 4 4 X 1 PUFF
     Route: 065
     Dates: start: 20191013, end: 20191104
  8. APIXABAN [Concomitant]
     Active Substance: APIXABAN
     Indication: ATRIAL FIBRILLATION
     Dosage: 2X PER DAY 1 TABLET
     Dates: start: 2016
  9. DIGOXIN. [Concomitant]
     Active Substance: DIGOXIN
     Dosage: 0.062 MILLIGRAM
     Dates: start: 201911
  10. ATENOLOL. [Concomitant]
     Active Substance: ATENOLOL
     Indication: HYPERTENSION
     Dosage: UNK
  11. DICLOFENAC [Concomitant]
     Active Substance: DICLOFENAC
     Indication: RHEUMATOID ARTHRITIS
     Dosage: 50 MILLIGRAM, BID

REACTIONS (3)
  - Atrial fibrillation [Recovered/Resolved]
  - Dyspnoea [Recovered/Resolved]
  - Product substitution issue [Unknown]

NARRATIVE: CASE EVENT DATE: 20191013
